FAERS Safety Report 7399482-5 (Version None)
Quarter: 2011Q1

REPORT INFORMATION
  Report Type: 
  Country: None (occurrence: None)
  Receive Date: 20110328
  Receipt Date: 20110321
  Transmission Date: 20110831
  Serious: Yes (Other)
  Sender: FDA-Public Use
  Company Number: 2011SP009214

PATIENT
  Age: 58 Year
  Sex: Female
  Weight: 90 kg

DRUGS (5)
  1. SERETIDE [Concomitant]
  2. AERIUS (DESLORATADINE /01398501/) [Suspect]
     Indication: URTICARIA
     Dosage: 1 DF;QD;PO
     Route: 048
     Dates: start: 20110221, end: 20110223
  3. COTAREG [Concomitant]
  4. AUGMENTIN [Concomitant]
  5. SOLUPRED [Concomitant]

REACTIONS (4)
  - MYALGIA [None]
  - TENDONITIS [None]
  - TENOSYNOVITIS [None]
  - PAIN IN EXTREMITY [None]
